FAERS Safety Report 5237388-8 (Version None)
Quarter: 2007Q1

REPORT INFORMATION
  Report Type: 
  Country: None (occurrence: None)
  Receive Date: 20070213
  Receipt Date: 20070131
  Transmission Date: 20070707
  Serious: Yes (Other)
  Sender: FDA-Public Use
  Company Number: US-SHR-US-2007-003364

PATIENT
  Age: 72 Year
  Sex: Female
  Weight: 77.2 kg

DRUGS (11)
  1. LEUKINE [Suspect]
     Dosage: 125 A?G/M2, 1X/DAY
     Route: 058
     Dates: start: 20060528, end: 20060610
  2. LEUKINE [Suspect]
     Dosage: 125 A?G/M2, 1X/DAY
     Route: 058
     Dates: start: 20060618, end: 20060701
  3. PACLITAXEL [Suspect]
     Dosage: 225 MG/M2, 1 DOSE
     Route: 042
     Dates: start: 20060525, end: 20060525
  4. PACLITAXEL [Suspect]
     Dosage: 225 MG/M2, 1 DOSE
     Route: 042
     Dates: start: 20060615, end: 20060615
  5. NEURONTIN [Concomitant]
  6. HYDROCHLOROTHIAZIDE [Concomitant]
  7. SYNTHROID [Concomitant]
  8. ASPIRIN [Concomitant]
  9. CALCIUM WITH VITAMIN D [Concomitant]
  10. DIAZEPAM [Concomitant]
  11. LOTREL [Concomitant]

REACTIONS (2)
  - ABDOMINAL PAIN LOWER [None]
  - HYPONATRAEMIA [None]
